FAERS Safety Report 23345895 (Version 3)
Quarter: 2024Q1

REPORT INFORMATION
  Report Type: Spontaneous
  Country: US (occurrence: US)
  Receive Date: 20231228
  Receipt Date: 20240226
  Transmission Date: 20240410
  Serious: Yes (Other)
  Sender: FDA-Public Use
  Company Number: US-BAYER-2023A181549

PATIENT
  Age: 52 Year
  Sex: Female
  Weight: 64.4 kg

DRUGS (2)
  1. GADAVIST [Suspect]
     Active Substance: GADOBUTROL
     Indication: Magnetic resonance imaging
     Dosage: 0.1 ML, ONCE
     Dates: start: 20231115, end: 20231115
  2. MEDROL [Concomitant]
     Active Substance: METHYLPREDNISOLONE

REACTIONS (5)
  - Throat irritation [None]
  - Dyspnoea [None]
  - Chest discomfort [None]
  - Loss of consciousness [None]
  - Product contamination [None]
